FAERS Safety Report 4616129-9 (Version None)
Quarter: 2005Q1

REPORT INFORMATION
  Report Type: 
  Country: None (occurrence: None)
  Receive Date: 20050323
  Receipt Date: 20050311
  Transmission Date: 20050727
  Serious: Yes (Hospitalization)
  Sender: FDA-Public Use
  Company Number: AU-NOVOPROD-242897

PATIENT
  Age: 62 Year
  Sex: Female

DRUGS (1)
  1. MIXTARD HUMAN 70/30 [Suspect]
     Indication: DIABETES MELLITUS

REACTIONS (2)
  - BLINDNESS TRANSIENT [None]
  - SIGHT DISABILITY [None]
